FAERS Safety Report 5208636-5 (Version None)
Quarter: 2007Q1

REPORT INFORMATION
  Report Type: 
  Country: None (occurrence: None)
  Receive Date: 20070116
  Receipt Date: 20070105
  Transmission Date: 20070707
  Serious: Yes (Other)
  Sender: FDA-Public Use
  Company Number: PHBS2007BR00746

PATIENT
  Age: 50 Year
  Sex: Male

DRUGS (3)
  1. FORASEQ [Suspect]
     Indication: BRONCHITIS
     Dosage: UNK, BID
  2. CIPROFLOXACIN [Concomitant]
  3. KLARICID [Concomitant]

REACTIONS (5)
  - BRONCHITIS [None]
  - CHEST X-RAY ABNORMAL [None]
  - INFLUENZA [None]
  - INSOMNIA [None]
  - PROSTATITIS [None]
